FAERS Safety Report 6312430-1 (Version None)
Quarter: 2009Q3

REPORT INFORMATION
  Report Type: 
  Country: None (occurrence: None)
  Receive Date: 20090813
  Receipt Date: 20090730
  Transmission Date: 20100115
  Serious: Yes (Hospitalization)
  Sender: FDA-Public Use
  Company Number: 8050017

PATIENT
  Age: 41 Year
  Sex: Female

DRUGS (7)
  1. KEPPRA [Suspect]
     Indication: CONVULSION
     Dates: start: 20090605, end: 20090710
  2. OROKEN [Suspect]
     Indication: EAR INFECTION
     Dosage: 400 MG 1/D
     Dates: start: 20090611, end: 20090616
  3. BACLOFENE [Concomitant]
  4. FORLAX [Concomitant]
  5. MYOLASTAN [Concomitant]
  6. LAMICTAL [Concomitant]
  7. RIVOTRIL [Concomitant]

REACTIONS (8)
  - ALANINE AMINOTRANSFERASE INCREASED [None]
  - ASPARTATE AMINOTRANSFERASE INCREASED [None]
  - BLOOD ALKALINE PHOSPHATASE INCREASED [None]
  - BLOOD BILIRUBIN INCREASED [None]
  - DIPLOPIA [None]
  - GAMMA-GLUTAMYLTRANSFERASE INCREASED [None]
  - JAUNDICE [None]
  - STRABISMUS [None]
